FAERS Safety Report 7893190-X (Version None)
Quarter: 2011Q4

REPORT INFORMATION
  Report Type: 
  Country: None (occurrence: None)
  Receive Date: 20111104
  Receipt Date: 20111026
  Transmission Date: 20120403
  Serious: Yes (Other)
  Sender: FDA-Public Use
  Company Number: PHHY2011BR95758

PATIENT
  Age: 25 Year
  Sex: Female

DRUGS (1)
  1. EXJADE [Suspect]
     Indication: HAEMOSIDEROSIS
     Dosage: 1500 MG DAILY (3 TABLETS DAILY)
     Route: 048

REACTIONS (3)
  - RASH [None]
  - ERYTHEMA [None]
  - SKIN EXFOLIATION [None]
